APPROVED DRUG PRODUCT: ATENOLOL AND CHLORTHALIDONE
Active Ingredient: ATENOLOL; CHLORTHALIDONE
Strength: 100MG;25MG
Dosage Form/Route: TABLET;ORAL
Application: A073665 | Product #002 | TE Code: AB
Applicant: WATSON LABORATORIES INC
Approved: Jul 2, 1992 | RLD: No | RS: No | Type: RX